FAERS Safety Report 8206250-0 (Version None)
Quarter: 2012Q1

REPORT INFORMATION
  Report Type: 
  Country: None (occurrence: None)
  Receive Date: 20120313
  Receipt Date: 20120308
  Transmission Date: 20120608
  Serious: Yes (Hospitalization)
  Sender: FDA-Public Use
  Company Number: PHHY2012VE021031

PATIENT
  Sex: Female

DRUGS (4)
  1. ZOLEDRONOC ACID [Suspect]
     Indication: OSTEOPOROSIS
     Dosage: UNK UKN, UNK
     Route: 042
     Dates: start: 20100510
  2. CALCIUM CARBONATE [Concomitant]
     Dosage: UNK UKN, UNK
  3. MAGNESIUM [Concomitant]
     Dosage: UNK UKN, QD
  4. ZOLEDRONOC ACID [Suspect]
     Dosage: UNK UKN, UNK
     Route: 042
     Dates: start: 20110510

REACTIONS (3)
  - AUTOIMMUNE HEPATITIS [None]
  - URINE CALCIUM [None]
  - PARATHYROID CYST [None]
